FAERS Safety Report 5250896-9 (Version None)
Quarter: 2007Q1

REPORT INFORMATION
  Report Type: 
  Country: None (occurrence: None)
  Receive Date: 20070228
  Receipt Date: 20060831
  Transmission Date: 20070707
  Serious: No
  Sender: FDA-Public Use
  Company Number: US-GLAXOSMITHKLINE-A0613521A

PATIENT
  Age: 35 Year
  Sex: Female

DRUGS (4)
  1. LAMICTAL [Suspect]
     Indication: TRIGEMINAL NERVE DISORDER
     Dosage: 25MG TWICE PER DAY
     Route: 048
     Dates: start: 20060721, end: 20060723
  2. ROXICODONE [Concomitant]
     Dosage: 15MG FOUR TIMES PER DAY
     Route: 048
  3. PHENERGAN HCL [Concomitant]
     Dosage: 25MG AS REQUIRED
     Route: 048
  4. XANAX [Concomitant]
     Dosage: 1MG TWICE PER DAY
     Route: 048

REACTIONS (3)
  - METRORRHAGIA [None]
  - NAUSEA [None]
  - RASH GENERALISED [None]
